FAERS Safety Report 6701299-9 (Version None)
Quarter: 2010Q2

REPORT INFORMATION
  Report Type: 
  Country: None (occurrence: None)
  Receive Date: 20100429
  Receipt Date: 20100420
  Transmission Date: 20101027
  Serious: Yes (Hospitalization, Other)
  Sender: FDA-Public Use
  Company Number: US-BIOGENIDEC-2010BI000435

PATIENT
  Age: 62 Year
  Sex: Male

DRUGS (33)
  1. TYSABRI [Suspect]
     Indication: MULTIPLE SCLEROSIS
     Route: 042
     Dates: start: 20061228
  2. TYSABRI [Suspect]
     Route: 042
     Dates: start: 20100305
  3. ANTIVERT [Concomitant]
  4. BACLOFEN [Concomitant]
  5. KEPPRA [Concomitant]
  6. ARICEPT [Concomitant]
  7. REQUIP [Concomitant]
  8. TRILEPTAL [Concomitant]
  9. TRAMADOL HCL [Concomitant]
  10. BUPROPION [Concomitant]
  11. OXYBUTYNIN CHLORIDE [Concomitant]
  12. ALBUTEROL [Concomitant]
  13. RHINOCORT [Concomitant]
  14. SINGULAIR [Concomitant]
  15. LIPITOR [Concomitant]
  16. METOPROLOL TARTRATE [Concomitant]
  17. NITROGLYCERIN [Concomitant]
  18. PROVIGIL [Concomitant]
  19. NEXIUM [Concomitant]
  20. TERAZOSIN HCL [Concomitant]
  21. LEVOTHYROXINE [Concomitant]
  22. PIROXICAM [Concomitant]
  23. ASPIRIN [Concomitant]
  24. MUCINEX [Concomitant]
  25. MULTI-VITAMIN [Concomitant]
  26. VITAMIN C [Concomitant]
  27. VITAMIN D [Concomitant]
  28. CALCIUM PLUS D [Concomitant]
  29. QUININE [Concomitant]
  30. PROAIR HFA [Concomitant]
  31. VOLTAREN [Concomitant]
  32. FLOMAX [Concomitant]
  33. HEP-LOCK [Concomitant]

REACTIONS (19)
  - ABDOMINAL WALL HAEMORRHAGE [None]
  - ACTIVATED PARTIAL THROMBOPLASTIN TIME PROLONGED [None]
  - BLOOD ALBUMIN DECREASED [None]
  - BLOOD CREATINE PHOSPHOKINASE INCREASED [None]
  - BLOOD GLUCOSE INCREASED [None]
  - COUGH [None]
  - DRUG EFFECT DECREASED [None]
  - HAEMORRHAGIC ANAEMIA [None]
  - HYPERTENSION [None]
  - MUSCLE HAEMORRHAGE [None]
  - PELVIC HAEMATOMA [None]
  - PLATELET COUNT DECREASED [None]
  - PLEURAL EFFUSION [None]
  - POST PROCEDURAL HAEMATURIA [None]
  - PROSTATE CANCER [None]
  - PROTEIN TOTAL DECREASED [None]
  - PROTEIN URINE PRESENT [None]
  - URINARY TRACT INFECTION STAPHYLOCOCCAL [None]
  - WHEEZING [None]
